FAERS Safety Report 7806951-X (Version None)
Quarter: 2011Q4

REPORT INFORMATION
  Report Type: 
  Country: None (occurrence: None)
  Receive Date: 20111011
  Receipt Date: 20110930
  Transmission Date: 20120403
  Serious: Yes (Hospitalization)
  Sender: FDA-Public Use
  Company Number: GB-JNJFOC-20111000852

PATIENT
  Sex: Female

DRUGS (2)
  1. ABIRATERONE ACETATE [Suspect]
     Indication: BREAST CANCER METASTATIC
     Dosage: CONTINUOUS 28-DAY CYCLE
     Route: 048
  2. ABIRATERONE ACETATE [Suspect]
     Route: 048

REACTIONS (1)
  - DYSPNOEA [None]
